FAERS Safety Report 12328716 (Version 3)
Quarter: 2016Q3

REPORT INFORMATION
  Report Type: Spontaneous
  Country: US (occurrence: US)
  Receive Date: 20160503
  Receipt Date: 20160808
  Transmission Date: 20161109
  Serious: No
  Sender: FDA-Public Use
  Company Number: US-BEH-2015050335

PATIENT
  Sex: Female
  Weight: 47 kg

DRUGS (16)
  1. HIZENTRA [Suspect]
     Active Substance: HUMAN IMMUNOGLOBULIN G
     Dosage: 1 G 5 ML VIAL
     Route: 058
     Dates: start: 20150228, end: 20150327
  2. DIPHENHYDRAMINE. [Concomitant]
     Active Substance: DIPHENHYDRAMINE
  3. HERBAL NOS [Concomitant]
     Active Substance: HERBALS
  4. HIZENTRA [Suspect]
     Active Substance: HUMAN IMMUNOGLOBULIN G
     Dosage: 2 G 10 ML VIAL
     Route: 058
     Dates: start: 20150228, end: 20150327
  5. ACETAMINOPHEN. [Concomitant]
     Active Substance: ACETAMINOPHEN
  6. HIZENTRA [Suspect]
     Active Substance: HUMAN IMMUNOGLOBULIN G
     Indication: IMMUNODEFICIENCY COMMON VARIABLE
     Dates: start: 20150228, end: 20150327
  7. NYSTATIN. [Concomitant]
     Active Substance: NYSTATIN
  8. HIZENTRA [Suspect]
     Active Substance: HUMAN IMMUNOGLOBULIN G
     Dosage: 4 G 20 ML VIAL
     Route: 058
     Dates: start: 20150228, end: 20150327
  9. LIDOCAINE. [Concomitant]
     Active Substance: LIDOCAINE
  10. DOXYCYCLINE. [Concomitant]
     Active Substance: DOXYCYCLINE
  11. EPIPEN [Concomitant]
     Active Substance: EPINEPHRINE
  12. SOMA [Concomitant]
     Active Substance: CARISOPRODOL
  13. PROBIOTIC [Concomitant]
     Active Substance: PROBIOTICS NOS
  14. MULTIVITAMIN [Concomitant]
     Active Substance: VITAMINS
  15. RITALIN [Concomitant]
     Active Substance: METHYLPHENIDATE HYDROCHLORIDE
  16. TRAZODONE [Concomitant]
     Active Substance: TRAZODONE HYDROCHLORIDE

REACTIONS (1)
  - Malabsorption [Unknown]
